FAERS Safety Report 8351815-9 (Version None)
Quarter: 2012Q2

REPORT INFORMATION
  Report Type: 
  Country: None (occurrence: None)
  Receive Date: 20120511
  Receipt Date: 20120504
  Transmission Date: 20120825
  Serious: No
  Sender: FDA-Public Use
  Company Number: US-BIOGENIDEC-2012BI016126

PATIENT
  Sex: Female

DRUGS (3)
  1. TYSABRI [Suspect]
     Indication: MULTIPLE SCLEROSIS
     Route: 042
     Dates: start: 20090805, end: 20110525
  2. AVONEX [Concomitant]
     Indication: MULTIPLE SCLEROSIS
     Route: 030
     Dates: start: 20070114
  3. TYSABRI [Suspect]
     Route: 042
     Dates: start: 20120119

REACTIONS (5)
  - ANAEMIA [None]
  - LOWER RESPIRATORY TRACT INFECTION [None]
  - FEAR [None]
  - HYPERSENSITIVITY [None]
  - ERYTHEMA [None]
